FAERS Safety Report 7558000-9 (Version None)
Quarter: 2011Q2

REPORT INFORMATION
  Report Type: 
  Country: None (occurrence: None)
  Receive Date: 20110620
  Receipt Date: 20110609
  Transmission Date: 20111010
  Serious: Yes (Other)
  Sender: FDA-Public Use
  Company Number: US-JNJFOC-20110501151

PATIENT
  Sex: Female
  Weight: 83.92 kg

DRUGS (2)
  1. SIMPONI [Suspect]
     Indication: RHEUMATOID ARTHRITIS
     Route: 058
     Dates: start: 20100101
  2. METHOTREXATE [Concomitant]
     Indication: RHEUMATOID ARTHRITIS
     Route: 048
     Dates: start: 19980101

REACTIONS (10)
  - RHEUMATOID ARTHRITIS [None]
  - DYSPHONIA [None]
  - NERVE COMPRESSION [None]
  - INJECTION SITE ERYTHEMA [None]
  - FEELING ABNORMAL [None]
  - INTERVERTEBRAL DISC DISORDER [None]
  - DERMATITIS CONTACT [None]
  - DEVICE FAILURE [None]
  - VISUAL IMPAIRMENT [None]
  - DRUG DOSE OMISSION [None]
